FAERS Safety Report 13445415 (Version 1)
Quarter: 2017Q2

REPORT INFORMATION
  Report Type: Report from Study
  Country: IT (occurrence: IT)
  Receive Date: 20170415
  Receipt Date: 20170415
  Transmission Date: 20170830
  Serious: Yes (Other)
  Sender: FDA-Public Use
  Company Number: IT-SUN PHARMACEUTICAL INDUSTRIES LTD-2015R1-107602

PATIENT
  Age: 3 Year
  Sex: Male

DRUGS (3)
  1. MELPHALAN. [Suspect]
     Active Substance: MELPHALAN
     Indication: RETINOBLASTOMA
     Dosage: UNK
     Route: 031
  2. TOPOTECAN [Suspect]
     Active Substance: TOPOTECAN HYDROCHLORIDE
     Indication: RETINOBLASTOMA
     Dosage: UNK
     Route: 013
  3. MELPHALAN. [Suspect]
     Active Substance: MELPHALAN
     Indication: RETINOBLASTOMA
     Dosage: UNK
     Route: 013

REACTIONS (5)
  - Lenticular opacities [Not Recovered/Not Resolved]
  - Chorioretinal atrophy [Not Recovered/Not Resolved]
  - Hypotonia [Not Recovered/Not Resolved]
  - Optic neuritis [Unknown]
  - Venous thrombosis [Recovered/Resolved]
